FAERS Safety Report 7026539-0 (Version None)
Quarter: 2010Q4

REPORT INFORMATION
  Report Type: 
  Country: None (occurrence: None)
  Receive Date: 20101004
  Receipt Date: 20100929
  Transmission Date: 20110411
  Serious: Yes (Other)
  Sender: FDA-Public Use
  Company Number: US-BAYER-201041018GPV

PATIENT
  Age: 65 Year
  Sex: Male

DRUGS (9)
  1. SORAFENIB [Suspect]
     Indication: HEPATIC NEOPLASM
     Route: 048
     Dates: start: 20091016, end: 20100709
  2. AMG 386 [Suspect]
     Indication: HEPATIC NEOPLASM
     Route: 042
     Dates: start: 20091016, end: 20100702
  3. PROTONIX [Concomitant]
     Route: 048
  4. CLARITIN [Concomitant]
     Route: 048
  5. LOMOTIL [Concomitant]
     Route: 048
  6. NORVASC [Concomitant]
  7. MAGNESIUM [Concomitant]
     Route: 048
  8. UROXATRAL [Concomitant]
     Route: 048
  9. ROZEREM [Concomitant]
     Route: 048

REACTIONS (1)
  - VISION BLURRED [None]
